FAERS Safety Report 10059455 (Version 3)
Quarter: 2014Q2

REPORT INFORMATION
  Report Type: Report from Study
  Country: AU (occurrence: AU)
  Receive Date: 20140404
  Receipt Date: 20140425
  Transmission Date: 20141212
  Serious: Yes (Death, Other)
  Sender: FDA-Public Use
  Company Number: AU-ASTRAZENECA-2013SE35389

PATIENT
  Age: 74 Year
  Sex: Male

DRUGS (2)
  1. COSUDEX [Suspect]
     Route: 048
     Dates: start: 20090401
  2. ZOLADEX [Suspect]
     Route: 058
     Dates: start: 20090401

REACTIONS (5)
  - Death [Fatal]
  - Malignant neoplasm progression [Not Recovered/Not Resolved]
  - Muscular weakness [Not Recovered/Not Resolved]
  - Back pain [Not Recovered/Not Resolved]
  - Mobility decreased [Not Recovered/Not Resolved]
